FAERS Safety Report 8416712-9 (Version None)
Quarter: 2012Q2

REPORT INFORMATION
  Report Type: 
  Country: None (occurrence: None)
  Receive Date: 20120606
  Receipt Date: 20120601
  Transmission Date: 20120825
  Serious: Yes (Other)
  Sender: FDA-Public Use
  Company Number: PHHY2010JP51730

PATIENT
  Sex: Male
  Weight: 69 kg

DRUGS (15)
  1. TASIGNA [Suspect]
     Dosage: 800 MG DAILY
     Route: 048
     Dates: start: 20090729, end: 20090805
  2. DASEN [Concomitant]
     Dosage: 30 MG, UNK
     Route: 048
     Dates: start: 20090708
  3. LANSOPRAZOLE [Concomitant]
     Dosage: 30 MG, UNK
     Route: 048
     Dates: start: 20090710, end: 20090723
  4. ONON [Concomitant]
     Dosage: 450 MG, UNK
     Route: 048
     Dates: start: 20090911
  5. THEO-DUR [Concomitant]
     Dosage: 200 MG, UNK
     Route: 048
     Dates: start: 20090911
  6. ZANTAC [Concomitant]
     Dosage: 300 MG, UNK
     Route: 048
     Dates: start: 20090708, end: 20090714
  7. TASIGNA [Suspect]
     Indication: CHRONIC MYELOID LEUKAEMIA
     Dosage: 800 MG DAILY
     Route: 048
     Dates: start: 20090708, end: 20090721
  8. TASIGNA [Suspect]
     Dosage: 600 MG DAILY
     Route: 048
     Dates: start: 20100331
  9. FAMOTIDINE [Concomitant]
     Dosage: 40 MG, UNK
     Route: 048
     Dates: start: 20090916
  10. BASEN [Concomitant]
     Indication: HYPERTENSION
     Dosage: 0.6 G, UNK
     Route: 048
     Dates: start: 20100414
  11. TASIGNA [Suspect]
     Dosage: 400 MG DAILY
     Route: 048
     Dates: start: 20090806, end: 20100330
  12. NEUQUINON [Concomitant]
     Dosage: 30 MG, UNK
     Route: 048
     Dates: start: 20090708
  13. ADALAT CC [Concomitant]
     Dosage: 20 MG, UNK
     Route: 048
     Dates: start: 20090708
  14. HYDREA [Concomitant]
     Indication: CHRONIC MYELOID LEUKAEMIA
     Dosage: 500 MG, UNK
     Route: 048
     Dates: start: 20090708, end: 20090714
  15. ALLEGRA [Concomitant]
     Dosage: 120 MG, UNK
     Route: 048
     Dates: start: 20090708

REACTIONS (2)
  - HYPOPHOSPHATAEMIA [None]
  - BLOOD PHOSPHORUS DECREASED [None]
